FAERS Safety Report 8432425-1 (Version None)
Quarter: 2012Q2

REPORT INFORMATION
  Report Type: 
  Country: None (occurrence: None)
  Receive Date: 20120607
  Receipt Date: 20120525
  Transmission Date: 20120825
  Serious: Yes (Hospitalization)
  Sender: FDA-Public Use
  Company Number: JPI-P-020891

PATIENT
  Age: 41 Year
  Sex: Female
  Weight: 68.9467 kg

DRUGS (11)
  1. DULOXETINE HYDROCHLORIDE [Concomitant]
  2. IRON [Concomitant]
  3. LEVOTHYROXINE SODIUM [Concomitant]
  4. TOLTERODINE TARTRATE [Concomitant]
  5. MODAFINIL [Concomitant]
  6. CALCIUM [Concomitant]
  7. XYREM [Suspect]
     Indication: HYPERSOMNIA
     Dosage: (TOTAL DAILY DOSE: 6 GM), ORAL, 3 FM (3 GM, 1 IN 1 D), ORAL, 6 GM (3 GM, 2 IN 1 D), ORAL
     Route: 048
     Dates: start: 20120118, end: 20120301
  8. XYREM [Suspect]
     Indication: NARCOLEPSY
     Dosage: (TOTAL DAILY DOSE: 6 GM), ORAL, 3 FM (3 GM, 1 IN 1 D), ORAL, 6 GM (3 GM, 2 IN 1 D), ORAL
     Route: 048
     Dates: start: 20120118, end: 20120301
  9. XYREM [Suspect]
     Indication: HYPERSOMNIA
     Dosage: (TOTAL DAILY DOSE: 6 GM), ORAL, 3 FM (3 GM, 1 IN 1 D), ORAL, 6 GM (3 GM, 2 IN 1 D), ORAL
     Route: 048
     Dates: start: 20120101, end: 20120101
  10. XYREM [Suspect]
     Indication: NARCOLEPSY
     Dosage: (TOTAL DAILY DOSE: 6 GM), ORAL, 3 FM (3 GM, 1 IN 1 D), ORAL, 6 GM (3 GM, 2 IN 1 D), ORAL
     Route: 048
     Dates: start: 20120101, end: 20120101
  11. ASCORBIC ACID [Concomitant]

REACTIONS (10)
  - CHOLECYSTECTOMY [None]
  - EYELID OEDEMA [None]
  - OEDEMA PERIPHERAL [None]
  - NAUSEA [None]
  - DIZZINESS [None]
  - HEADACHE [None]
  - VERTIGO [None]
  - SWELLING FACE [None]
  - EPISTAXIS [None]
  - IRRITABILITY [None]
